FAERS Safety Report 9305698 (Version 1)
Quarter: 2013Q2

REPORT INFORMATION
  Report Type: Spontaneous
  Country: US (occurrence: US)
  Receive Date: 20130523
  Receipt Date: 20130523
  Transmission Date: 20140414
  Serious: Yes (Other)
  Sender: FDA-Public Use
  Company Number: US-ELI_LILLY_AND_COMPANY-US201305005510

PATIENT
  Age: 35 Year
  Sex: Male

DRUGS (2)
  1. HUMALOG LISPRO [Suspect]
     Dosage: UNK
     Route: 058
  2. LANTUS [Concomitant]

REACTIONS (3)
  - Diabetic ketoacidosis [Unknown]
  - Blood glucose increased [Recovering/Resolving]
  - Disorientation [Unknown]
